FAERS Safety Report 8327266-X (Version None)
Quarter: 2012Q2

REPORT INFORMATION
  Report Type: 
  Country: None (occurrence: None)
  Receive Date: 20120502
  Receipt Date: 20120427
  Transmission Date: 20120825
  Serious: Yes (Hospitalization, Disabling, Other)
  Sender: FDA-Public Use
  Company Number: ZA-BRISTOL-MYERS SQUIBB COMPANY-15736044

PATIENT
  Age: 17 Year
  Sex: Female
  Weight: 70 kg

DRUGS (11)
  1. MORPHINE SULFATE [Concomitant]
     Route: 048
     Dates: start: 20110829
  2. PIPERACILLIN AND TAZOBACTAM [Concomitant]
     Dates: start: 20110625
  3. AMOXIL [Concomitant]
     Dates: start: 20110606
  4. MYCOSTATIN [Concomitant]
     Route: 048
     Dates: start: 20110822, end: 20110826
  5. VANCOMYCIN [Concomitant]
     Dates: start: 20110627
  6. AMIKACIN [Concomitant]
     Dates: start: 20110625
  7. KENALOG [Concomitant]
     Dosage: KENALOG IN OROBASE
     Dates: start: 20110822, end: 20110826
  8. DASATINIB [Suspect]
     Indication: LEUKAEMIA
     Dosage: INTERRUPTED ON 07JUN2011 5JUL11-31AUG11 110MG 31AUG2011-CONT 135MG
     Route: 048
     Dates: start: 20110509
  9. ACETAMINOPHEN [Concomitant]
     Dates: start: 20110606
  10. ANDOLEX [Concomitant]
     Dosage: MOUTH WASH
     Dates: start: 20110822, end: 20110826
  11. LACTULOSE [Concomitant]
     Route: 048
     Dates: start: 20110829

REACTIONS (8)
  - PYREXIA [None]
  - PAIN [None]
  - FEBRILE NEUTROPENIA [None]
  - BLAST CELL CRISIS [None]
  - NEUTROPENIA [None]
  - ORAL HERPES [None]
  - BRONCHOPNEUMONIA [None]
  - ANAL ULCER [None]
